FAERS Safety Report 7582361-8 (Version None)
Quarter: 2011Q2

REPORT INFORMATION
  Report Type: 
  Country: None (occurrence: None)
  Receive Date: 20110527
  Receipt Date: 20110328
  Transmission Date: 20111010
  Serious: No
  Sender: FDA-Public Use
  Company Number: AUR-APL-2011-01160(0)

PATIENT
  Age: 52 Year
  Sex: Male
  Weight: 91.61 kg

DRUGS (3)
  1. LAMOTRIGINE TABLET [Suspect]
     Indication: BIPOLAR I DISORDER
     Dosage: 300MG - DAILY-ORAL
     Route: 048
  2. SYNTHROID [Concomitant]
  3. GEODON [Suspect]
     Indication: BIPOLAR I DISORDER
     Dosage: 20MG -BID-ORAL
     Route: 048
     Dates: start: 20100101

REACTIONS (1)
  - RESTLESSNESS [None]
